FAERS Safety Report 5933794-4 (Version None)
Quarter: 2008Q4

REPORT INFORMATION
  Report Type: 
  Country: None (occurrence: None)
  Receive Date: 20081029
  Receipt Date: 20081020
  Transmission Date: 20090506
  Serious: Yes (Hospitalization)
  Sender: FDA-Public Use
  Company Number: AU-PURDUE-USA_2008_0035534

PATIENT
  Age: 50 Year
  Sex: Male

DRUGS (6)
  1. OXYCODONE HCL [Suspect]
     Indication: DRUG USE FOR UNKNOWN INDICATION
     Dosage: 20 MG, DAILY
  2. CLONIDINE HCL [Suspect]
     Dosage: 300 MCG, UNK
  3. TRAMADOL HCL [Suspect]
     Dosage: 200 MG, DAILY
  4. FENTANYL [Suspect]
     Dosage: 200 MCG, UNK
  5. TRAMADOL HCL [Suspect]
     Dosage: 100 MG, SINGLE
  6. EFEXOR                             /01233802/ [Suspect]
     Dosage: 75 MG, UNK

REACTIONS (1)
  - SEROTONIN SYNDROME [None]
